FAERS Safety Report 8374609-7 (Version None)
Quarter: 2012Q2

REPORT INFORMATION
  Report Type: 
  Country: None (occurrence: None)
  Receive Date: 20120521
  Receipt Date: 20111214
  Transmission Date: 20120825
  Serious: No
  Sender: FDA-Public Use
  Company Number: US-ASTRAZENECA-2011SE78776

PATIENT
  Age: 84 Year
  Sex: Female

DRUGS (1)
  1. PRILOSEC OTC [Suspect]
     Indication: ABDOMINAL DISCOMFORT
     Dosage: 1 TABLET 3 TO 4 TIMES A DAY FOR 1 DAY
     Route: 048
     Dates: start: 20111213, end: 20111213

REACTIONS (3)
  - INCORRECT DOSE ADMINISTERED [None]
  - ASTHENIA [None]
  - NAUSEA [None]
